FAERS Safety Report 9886320 (Version 1)
Quarter: 2014Q1

REPORT INFORMATION
  Report Type: Report from Study
  Country: US (occurrence: US)
  Receive Date: 20140210
  Receipt Date: 20140210
  Transmission Date: 20141002
  Serious: Yes (Other)
  Sender: FDA-Public Use
  Company Number: US-ALEXION PHARMACEUTICALS INC.-A201400414

PATIENT
  Age: 75 Year
  Sex: Male

DRUGS (8)
  1. SOLIRIS [Suspect]
     Indication: PAROXYSMAL NOCTURNAL HAEMOGLOBINURIA
     Dosage: 600 MG, QW
     Dates: start: 20070522
  2. DOXAZOSIN [Concomitant]
  3. EPOGEN [Concomitant]
  4. FOLIC ACID [Concomitant]
     Dosage: UNK, Q2W
  5. METOPROLOL [Concomitant]
     Dosage: UNK
  6. NOVASEN [Concomitant]
     Dosage: UNK
  7. PLAVIX [Concomitant]
  8. PRILOSEC                           /00661201/ [Concomitant]
     Dosage: 20 MG, QD

REACTIONS (2)
  - Hernia repair [Unknown]
  - Haemoglobin decreased [Recovering/Resolving]
